FAERS Safety Report 6686687-1 (Version None)
Quarter: 2010Q2

REPORT INFORMATION
  Report Type: 
  Country: None (occurrence: None)
  Receive Date: 20100416
  Receipt Date: 20100416
  Transmission Date: 20101027
  Serious: Yes (Life-Threatening, Hospitalization)
  Sender: FDA-Public Use
  Company Number: None

PATIENT
  Age: 18 Year
  Sex: Female
  Weight: 72.5755 kg

DRUGS (1)
  1. PREDNISONE [Suspect]
     Indication: BRONCHITIS
     Dosage: 20 MG 2/DAY 5 DAYS ORAL
     Route: 048
     Dates: start: 20100311, end: 20100315

REACTIONS (3)
  - HALLUCINATION [None]
  - PSYCHOTIC DISORDER [None]
  - SUICIDAL IDEATION [None]
